FAERS Safety Report 8967701 (Version 1)
Quarter: 2012Q4

REPORT INFORMATION
  Report Type: Spontaneous
  Country: SG (occurrence: None)
  Receive Date: 20121207
  Receipt Date: 20121207
  Transmission Date: 20130627
  Serious: Yes (Hospitalization)
  Sender: FDA-Public Use
  Company Number: ENTC2012-0543

PATIENT
  Age: 68 Year
  Sex: Male

DRUGS (6)
  1. STALEVO (LEVODOPA, CARBIDOPA, ENTACAPONE) [Suspect]
     Indication: PARKINSON^S DISEASE
     Dosage: 150/37.5/200  mg  four times a day  (at  7 am,  11 am,  3 pm  and  7 pm)
     Route: 048
     Dates: start: 201203, end: 20121119
  2. MADOPAR HBS [Concomitant]
  3. NORVASC [Concomitant]
  4. FLUVOXAMINE [Concomitant]
  5. ASPIRIN [Concomitant]
  6. ENALAPRIL [Concomitant]

REACTIONS (4)
  - Ischaemic stroke [None]
  - Dysphagia [None]
  - Blood pressure increased [None]
  - Musculoskeletal stiffness [None]
